FAERS Safety Report 7060000-2 (Version None)
Quarter: 2010Q4

REPORT INFORMATION
  Report Type: 
  Country: None (occurrence: None)
  Receive Date: 20101025
  Receipt Date: 20101021
  Transmission Date: 20110411
  Serious: Yes (Other)
  Sender: FDA-Public Use
  Company Number: US-CEPHALON-2010005559

PATIENT
  Sex: Female
  Weight: 85 kg

DRUGS (8)
  1. NUVIGIL [Suspect]
     Indication: SLEEP APNOEA SYNDROME
     Route: 048
     Dates: start: 20100712
  2. NUVIGIL [Suspect]
     Indication: NARCOLEPSY
     Route: 048
     Dates: start: 20100801, end: 20100925
  3. PROVIGIL [Suspect]
     Indication: SLEEP APNOEA SYNDROME
     Route: 048
  4. PROVIGIL [Suspect]
     Indication: NARCOLEPSY
     Route: 048
  5. PROVIGIL [Suspect]
     Route: 048
  6. PROVIGIL [Suspect]
     Route: 048
  7. ADDERALL XR 10 [Concomitant]
     Dates: start: 20100101
  8. TOPAMAX [Concomitant]

REACTIONS (1)
  - CONVULSION [None]
